FAERS Safety Report 10391184 (Version 1)
Quarter: 2014Q3

REPORT INFORMATION
  Report Type: Spontaneous
  Country: US (occurrence: US)
  Receive Date: 20140818
  Receipt Date: 20140818
  Transmission Date: 20150326
  Serious: Yes (Death)
  Sender: FDA-Public Use
  Company Number: US-BAYER-2014-120164

PATIENT

DRUGS (1)
  1. MIRENA [Suspect]
     Active Substance: LEVONORGESTREL
     Route: 064

REACTIONS (2)
  - Exposure during pregnancy [None]
  - Foetal death [Fatal]

NARRATIVE: CASE EVENT DATE: 20130412
